FAERS Safety Report 6146714-7 (Version None)
Quarter: 2009Q2

REPORT INFORMATION
  Report Type: 
  Country: None (occurrence: None)
  Receive Date: 20090403
  Receipt Date: 20090403
  Transmission Date: 20091009
  Serious: Yes (Life-Threatening, Hospitalization)
  Sender: FDA-Public Use
  Company Number: None

PATIENT
  Age: 38 Year
  Sex: Male
  Weight: 55 kg

DRUGS (2)
  1. WARFARIN SODIUM [Suspect]
     Indication: DEEP VEIN THROMBOSIS
     Dosage: 15 MG EVERY DAY PO
     Route: 048
     Dates: start: 20090225, end: 20090317
  2. ENOXAPARIN [Suspect]
     Indication: DEEP VEIN THROMBOSIS
     Dosage: 80 MG BID SQ
     Route: 058
     Dates: start: 20090307, end: 20090317

REACTIONS (15)
  - ASTHENIA [None]
  - CARDIAC FAILURE CONGESTIVE [None]
  - CHRONIC OBSTRUCTIVE PULMONARY DISEASE [None]
  - COAGULOPATHY [None]
  - DRUG DOSE OMISSION [None]
  - HAEMATURIA [None]
  - HAEMOPTYSIS [None]
  - HEPATIC CONGESTION [None]
  - INAPPROPRIATE SCHEDULE OF DRUG ADMINISTRATION [None]
  - INTERNATIONAL NORMALISED RATIO INCREASED [None]
  - LETHARGY [None]
  - LIP HAEMORRHAGE [None]
  - PROTHROMBIN TIME PROLONGED [None]
  - RIGHT VENTRICULAR FAILURE [None]
  - TREATMENT NONCOMPLIANCE [None]
